FAERS Safety Report 10437715 (Version 2)
Quarter: 2014Q3

REPORT INFORMATION
  Report Type: Spontaneous
  Country: US (occurrence: US)
  Receive Date: 20140908
  Receipt Date: 20140908
  Transmission Date: 20150326
  Serious: No
  Sender: FDA-Public Use
  Company Number: US-BRISTOL-MYERS SQUIBB COMPANY-19736156

PATIENT
  Age: 21 Year
  Sex: Male
  Weight: 90.7 kg

DRUGS (6)
  1. XANAX [Concomitant]
     Active Substance: ALPRAZOLAM
  2. ABILIFY [Suspect]
     Active Substance: ARIPIPRAZOLE
     Indication: SCHIZOPHRENIA, PARANOID TYPE
     Route: 048
     Dates: start: 201310
  3. LORAZEPAM. [Concomitant]
     Active Substance: LORAZEPAM
  4. TRIHEXYPHENIDYL [Concomitant]
     Active Substance: TRIHEXYPHENIDYL
  5. RISPERDAL [Concomitant]
     Active Substance: RISPERIDONE
  6. BENZTROPINE [Concomitant]
     Active Substance: BENZTROPINE

REACTIONS (5)
  - Dizziness [Unknown]
  - Akathisia [Unknown]
  - Vertigo [Unknown]
  - Panic attack [Unknown]
  - Anxiety [Unknown]

NARRATIVE: CASE EVENT DATE: 201305
